FAERS Safety Report 8528972-4 (Version None)
Quarter: 2012Q3

REPORT INFORMATION
  Report Type: 
  Country: None (occurrence: None)
  Receive Date: 20120723
  Receipt Date: 20120717
  Transmission Date: 20120928
  Serious: Yes (Other)
  Sender: FDA-Public Use
  Company Number: US-PFIZER INC-2012152776

PATIENT
  Sex: Female
  Weight: 57 kg

DRUGS (3)
  1. PREMARIN [Suspect]
     Indication: HORMONE REPLACEMENT THERAPY
     Dosage: 0.3 MG, FOUR TIMES A WEEK
     Route: 048
     Dates: start: 20120101
  2. ESTRATEST [Concomitant]
     Dosage: UNK, 2X/WEEK
  3. PREMARIN [Suspect]
     Dosage: UNK
     Route: 067
     Dates: start: 20120101, end: 20120101

REACTIONS (1)
  - BREAST CANCER IN SITU [None]
